FAERS Safety Report 8175554-2 (Version None)
Quarter: 2012Q1

REPORT INFORMATION
  Report Type: 
  Country: None (occurrence: None)
  Receive Date: 20120301
  Receipt Date: 20120221
  Transmission Date: 20120608
  Serious: Yes (Hospitalization, Other)
  Sender: FDA-Public Use
  Company Number: US-BRISTOL-MYERS SQUIBB COMPANY-16347908

PATIENT
  Age: 38 Year
  Sex: Female

DRUGS (8)
  1. TRAMADOL HCL [Concomitant]
     Dosage: PILL
  2. CLONAZEPAM [Concomitant]
     Dosage: 1DF-0.5 UNITS NT SPECIFIED AT NYT
  3. ABILIFY [Suspect]
     Dosage: 2MG DAILY FOR 2 DAYS THEN 5MG
     Route: 048
  4. NORFLEX [Concomitant]
  5. CELEBREX [Concomitant]
     Dosage: IN MRNG
  6. LEXAPRO [Concomitant]
  7. ZOLPIDEM [Concomitant]
     Dosage: AT NYT
  8. TOPAMAX [Concomitant]
     Dosage: A SUPPER TIME 20MG

REACTIONS (10)
  - HYPERSENSITIVITY [None]
  - URINARY RETENTION [None]
  - LETHARGY [None]
  - WITHDRAWAL SYNDROME [None]
  - TREMOR [None]
  - RESTLESSNESS [None]
  - AGITATION [None]
  - BLADDER OBSTRUCTION [None]
  - INJURY [None]
  - DYSKINESIA [None]
